FAERS Safety Report 10663566 (Version 2)
Quarter: 2015Q1

REPORT INFORMATION
  Report Type: Spontaneous
  Country: DE (occurrence: DE)
  Receive Date: 20141219
  Receipt Date: 20150205
  Transmission Date: 20150720
  Serious: Yes (Other)
  Sender: FDA-Public Use
  Company Number: DE-AMGEN-DEUSP2014098529

PATIENT
  Age: 70 Year
  Sex: Male

DRUGS (1)
  1. XGEVA [Suspect]
     Active Substance: DENOSUMAB
     Indication: METASTASES TO PROSTATE
     Dosage: 120
     Route: 065
     Dates: start: 20111202

REACTIONS (3)
  - Osteonecrosis of jaw [Unknown]
  - Tooth loss [Unknown]
  - Impaired healing [Unknown]
